FAERS Safety Report 13966240 (Version 1)
Quarter: 2017Q3

REPORT INFORMATION
  Report Type: Spontaneous
  Country: IT (occurrence: IT)
  Receive Date: 20170913
  Receipt Date: 20170913
  Transmission Date: 20171128
  Serious: Yes (Other)
  Sender: FDA-Public Use
  Company Number: IT-TAKEDA-2017TUS019117

PATIENT
  Age: 42 Year
  Sex: Male
  Weight: 100 kg

DRUGS (4)
  1. RISPERDAL [Suspect]
     Active Substance: RISPERIDONE
     Indication: INTENTIONAL SELF-INJURY
     Dosage: 2 MG, UNK
     Route: 048
     Dates: start: 20170814, end: 20170814
  2. RISPERDAL [Suspect]
     Active Substance: RISPERIDONE
     Dosage: 60 MG, UNK
     Route: 048
     Dates: start: 20170814, end: 20170814
  3. DELORAZEPAM [Suspect]
     Active Substance: DELORAZEPAM
     Indication: INTENTIONAL SELF-INJURY
     Dosage: 40 MG, UNK
     Route: 048
     Dates: start: 20170814, end: 20170814
  4. BRINTELLIX [Suspect]
     Active Substance: VORTIOXETINE HYDROBROMIDE
     Indication: INTENTIONAL SELF-INJURY
     Dosage: 560 MG, UNK
     Route: 048
     Dates: start: 20170814, end: 20170814

REACTIONS (2)
  - Overdose [Unknown]
  - Fatigue [Unknown]

NARRATIVE: CASE EVENT DATE: 20170814
